FAERS Safety Report 20043072 (Version 2)
Quarter: 2021Q4

REPORT INFORMATION
  Report Type: Spontaneous
  Country: US (occurrence: US)
  Receive Date: 20211108
  Receipt Date: 20211227
  Transmission Date: 20220303
  Serious: Yes (Other)
  Sender: FDA-Public Use
  Company Number: US-drreddys-SPO/USA/21/0143489

PATIENT
  Age: 66 Year
  Sex: Female

DRUGS (5)
  1. METFORMIN [Suspect]
     Active Substance: METFORMIN HYDROCHLORIDE
     Indication: Type 2 diabetes mellitus
  2. INSULIN DEGLUDEC [Suspect]
     Active Substance: INSULIN DEGLUDEC
     Indication: Type 2 diabetes mellitus
     Dosage: INJECTED
  3. ATORVASTATIN [Concomitant]
     Active Substance: ATORVASTATIN
     Indication: Product used for unknown indication
  4. HYDROCHLOROTHIAZIDE 12.5 mg, LISINOPRIL 10 mg [Concomitant]
     Indication: Product used for unknown indication
  5. HYDROCHLOROTHIAZIDE 12.5 mg, LISINOPRIL 10 mg [Concomitant]

REACTIONS (3)
  - Peripheral sensorimotor neuropathy [Recovering/Resolving]
  - Diabetic neuropathy [Recovering/Resolving]
  - Hypoglycaemia [Recovering/Resolving]
